FAERS Safety Report 6414776-5 (Version None)
Quarter: 2009Q4

REPORT INFORMATION
  Report Type: 
  Country: None (occurrence: None)
  Receive Date: 20091026
  Receipt Date: 20091026
  Transmission Date: 20100525
  Serious: Yes (Other)
  Sender: FDA-Public Use
  Company Number: None

PATIENT
  Age: 30 Year
  Sex: Male
  Weight: 99.7913 kg

DRUGS (1)
  1. KOOL KINGS FILTERED CIGARETTES FULL FLAVOR R.J. REYNOLDS [Suspect]

REACTIONS (3)
  - HEADACHE [None]
  - NAUSEA [None]
  - THROAT IRRITATION [None]
